FAERS Safety Report 17583567 (Version 1)
Quarter: 2020Q1

REPORT INFORMATION
  Report Type: Spontaneous
  Country: US (occurrence: US)
  Receive Date: 20200326
  Receipt Date: 20200326
  Transmission Date: 20200409
  Serious: Yes (Other)
  Sender: FDA-Public Use
  Company Number: US-INTERCEPT-PM2020000806

PATIENT
  Sex: Female

DRUGS (2)
  1. OCALIVA [Suspect]
     Active Substance: OBETICHOLIC ACID
     Dosage: 10 MG, QD
     Route: 048
  2. URSODIOL. [Suspect]
     Active Substance: URSODIOL

REACTIONS (9)
  - Blood alkaline phosphatase abnormal [Unknown]
  - Drug ineffective [Unknown]
  - Disease progression [Unknown]
  - Dysphagia [Unknown]
  - Choking [Unknown]
  - Concussion [Unknown]
  - Product prescribing error [Unknown]
  - Memory impairment [Unknown]
  - Road traffic accident [Unknown]
